FAERS Safety Report 16806637 (Version 1)
Quarter: 2019Q3

REPORT INFORMATION
  Report Type: Spontaneous
  Country: US (occurrence: US)
  Receive Date: 20190913
  Receipt Date: 20190913
  Transmission Date: 20191005
  Serious: No
  Sender: FDA-Public Use
  Company Number: US-NEXGEN PHARMA, INC.-2074451

PATIENT
  Age: 38 Year

DRUGS (2)
  1. CHENODAL [Suspect]
     Active Substance: CHENODIOL
     Indication: HYPERLIPIDAEMIA
     Route: 048
     Dates: start: 20150312
  2. CHENODAL [Concomitant]
     Active Substance: CHENODIOL
     Route: 048
     Dates: start: 20150312

REACTIONS (1)
  - Weight decreased [Unknown]
